FAERS Safety Report 4366513-6 (Version None)
Quarter: 2004Q2

REPORT INFORMATION
  Report Type: 
  Country: None (occurrence: None)
  Receive Date: 20040524
  Receipt Date: 20040511
  Transmission Date: 20050107
  Serious: No
  Sender: FDA-Public Use
  Company Number: 2004SE02652

PATIENT
  Age: 61 Year
  Sex: Male

DRUGS (2)
  1. AMIAS [Suspect]
     Indication: HYPERTENSION
     Dates: start: 20010101
  2. BETA-CARDONE [Suspect]
     Indication: HYPERTENSION
     Dates: start: 20010101

REACTIONS (1)
  - PHOTOSENSITIVE RASH [None]
